FAERS Safety Report 10225345 (Version 1)
Quarter: 2014Q2

REPORT INFORMATION
  Report Type: Spontaneous
  Country: FR (occurrence: FR)
  Receive Date: 20140609
  Receipt Date: 20140609
  Transmission Date: 20141212
  Serious: Yes (Hospitalization)
  Sender: FDA-Public Use
  Company Number: FR-JNJFOC-20140519353

PATIENT
  Age: 40 Year
  Sex: Female

DRUGS (2)
  1. XEPLION [Suspect]
     Indication: PRODUCT USED FOR UNKNOWN INDICATION
     Dosage: (150 MG +100 MG)
     Route: 030
     Dates: start: 20140525
  2. XEPLION [Suspect]
     Indication: PRODUCT USED FOR UNKNOWN INDICATION
     Route: 030

REACTIONS (6)
  - Delirium [Unknown]
  - Overdose [Unknown]
  - Self-medication [Unknown]
  - Inappropriate schedule of drug administration [Unknown]
  - Induration [Unknown]
  - Device leakage [Unknown]
